FAERS Safety Report 22352246 (Version 5)
Quarter: 2023Q4

REPORT INFORMATION
  Report Type: Spontaneous
  Country: US (occurrence: US)
  Receive Date: 20230522
  Receipt Date: 20231002
  Transmission Date: 20240110
  Serious: Yes (Other)
  Sender: FDA-Public Use
  Company Number: US-PFIZER INC-PV202300089808

PATIENT
  Age: 53 Year
  Sex: Female

DRUGS (2)
  1. IBRANCE [Suspect]
     Active Substance: PALBOCICLIB
     Dosage: 125 MG, DAILY
     Dates: end: 202308
  2. LETROZOLE [Concomitant]
     Active Substance: LETROZOLE
     Dosage: UNK

REACTIONS (7)
  - Breast injury [Unknown]
  - Fatigue [Unknown]
  - Wound complication [Unknown]
  - Pain [Unknown]
  - Lymphoedema [Unknown]
  - Muscle spasms [Unknown]
  - Neoplasm progression [Unknown]
